FAERS Safety Report 11935344 (Version 4)
Quarter: 2016Q2

REPORT INFORMATION
  Report Type: Spontaneous
  Country: US (occurrence: US)
  Receive Date: 20160121
  Receipt Date: 20160426
  Transmission Date: 20160815
  Serious: No
  Sender: FDA-Public Use
  Company Number: US-PFIZER INC-2016031338

PATIENT
  Age: 68 Year
  Sex: Male

DRUGS (5)
  1. DEPO-TESTOSTERONE [Suspect]
     Active Substance: TESTOSTERONE CYPIONATE
     Indication: BLOOD TESTOSTERONE DECREASED
     Dosage: 100 MG, WEEKLY
     Route: 030
  2. DEPO-TESTOSTERONE [Suspect]
     Active Substance: TESTOSTERONE CYPIONATE
     Indication: SLUGGISHNESS
     Dosage: 0.5 ML, WEEKLY
     Dates: start: 2009
  3. DEPO-TESTOSTERONE [Suspect]
     Active Substance: TESTOSTERONE CYPIONATE
     Indication: SEXUAL DYSFUNCTION
  4. DEPO-TESTOSTERONE [Suspect]
     Active Substance: TESTOSTERONE CYPIONATE
     Indication: LETHARGY
  5. DEPO-TESTOSTERONE [Suspect]
     Active Substance: TESTOSTERONE CYPIONATE
     Indication: ASTHENIA

REACTIONS (2)
  - Drug effect incomplete [Unknown]
  - Product quality issue [Unknown]

NARRATIVE: CASE EVENT DATE: 2009
